FAERS Safety Report 17079490 (Version 1)
Quarter: 2019Q4

REPORT INFORMATION
  Report Type: Spontaneous
  Country: US (occurrence: US)
  Receive Date: 20191029
  Receipt Date: 20191029
  Transmission Date: 20200122
  Serious: No
  Sender: FDA-Public Use
  Company Number: None

PATIENT
  Age: 13 Year
  Sex: Male

DRUGS (1)
  1. OMNITROPE [Suspect]
     Active Substance: SOMATROPIN
     Dosage: ?          OTHER DOSE:10MG/1.5 ;?
     Route: 058
     Dates: start: 201703

REACTIONS (1)
  - Surgery [None]

NARRATIVE: CASE EVENT DATE: 20191029
